FAERS Safety Report 22289485 (Version 5)
Quarter: 2023Q2

REPORT INFORMATION
  Report Type: Report from Study
  Country: CN (occurrence: CN)
  Receive Date: 20230505
  Receipt Date: 20230601
  Transmission Date: 20230722
  Serious: Yes (Hospitalization, Other)
  Sender: FDA-Public Use
  Company Number: CN-BRISTOL-MYERS SQUIBB COMPANY-2023-001122

PATIENT
  Age: 44 Year
  Sex: Female
  Weight: 58 kg

DRUGS (1)
  1. VIDAZA [Suspect]
     Active Substance: AZACITIDINE
     Indication: Chronic myelomonocytic leukaemia
     Dosage: QD
     Route: 058
     Dates: start: 20181123, end: 20190411

REACTIONS (33)
  - Upper respiratory tract infection [Recovered/Resolved]
  - Nasal congestion [Unknown]
  - Rhinorrhoea [Unknown]
  - Gingivitis [Recovered/Resolved]
  - Rash pruritic [Recovered/Resolved]
  - Haemorrhage [Recovered/Resolved]
  - Myelosuppression [Recovered/Resolved]
  - Pharyngitis [Recovered/Resolved]
  - Blood bilirubin increased [Unknown]
  - Pharyngeal erythema [Unknown]
  - Pyrexia [Recovered/Resolved]
  - Headache [Recovered/Resolved]
  - Palpitations [Recovered/Resolved]
  - Fatigue [Unknown]
  - Decreased appetite [Unknown]
  - Night sweats [Unknown]
  - Musculoskeletal chest pain [Recovered/Resolved]
  - Respiratory tract infection [Unknown]
  - Abdominal pain upper [Recovered/Resolved]
  - Hypoalbuminaemia [Unknown]
  - Cachexia [Unknown]
  - Pneumonia [Unknown]
  - Abdominal distension [Recovered/Resolved]
  - Intestinal obstruction [Unknown]
  - Hyperglycaemia [Unknown]
  - Blood albumin decreased [Unknown]
  - Blood fibrinogen decreased [Unknown]
  - Protein urine present [Unknown]
  - Muscular weakness [Unknown]
  - Hypoaesthesia [Unknown]
  - Deafness [Unknown]
  - Transient ischaemic attack [Unknown]
  - Monocyte count increased [Unknown]

NARRATIVE: CASE EVENT DATE: 20181207
